FAERS Safety Report 23329313 (Version 6)
Quarter: 2025Q4

REPORT INFORMATION
  Report Type: Report from Study
  Country: US (occurrence: US)
  Receive Date: 20231222
  Receipt Date: 20251001
  Transmission Date: 20260117
  Serious: Yes (Other)
  Sender: UCB
  Company Number: US-UCBSA-2023059427

PATIENT
  Age: 12 Year
  Sex: Female
  Weight: 39.54 kg

DRUGS (3)
  1. FINTEPLA [Suspect]
     Active Substance: FENFLURAMINE
     Indication: Severe myoclonic epilepsy of infancy
     Dosage: 5 MILLILITER, 2X/DAY (BID)
     Route: 048
     Dates: start: 202105
  2. FINTEPLA [Suspect]
     Active Substance: FENFLURAMINE
     Dosage: 22 MG/DAY
     Route: 048
  3. FINTEPLA [Suspect]
     Active Substance: FENFLURAMINE
     Dosage: 24.2 MG PER DAY
     Route: 048

REACTIONS (2)
  - Respiratory syncytial virus infection [Not Recovered/Not Resolved]
  - Tricuspid valve incompetence [Unknown]

NARRATIVE: CASE EVENT DATE: 20231201
